FAERS Safety Report 24335925 (Version 2)
Quarter: 2024Q3

REPORT INFORMATION
  Report Type: Spontaneous
  Country: FI (occurrence: FI)
  Receive Date: 20240919
  Receipt Date: 20240924
  Transmission Date: 20241016
  Serious: No
  Sender: UCB
  Company Number: FI-UCBSA-2024047927

PATIENT

DRUGS (1)
  1. NEUPRO [Suspect]
     Active Substance: ROTIGOTINE
     Indication: Product used for unknown indication
     Dosage: 6 MILLIGRAM, ONCE DAILY (QD)
     Route: 062

REACTIONS (1)
  - Product adhesion issue [Unknown]
